FAERS Safety Report 10152732 (Version 1)
Quarter: 2014Q2

REPORT INFORMATION
  Report Type: Spontaneous
  Country: IT (occurrence: IT)
  Receive Date: 20140505
  Receipt Date: 20140505
  Transmission Date: 20141212
  Serious: Yes (Hospitalization)
  Sender: FDA-Public Use
  Company Number: US-ASTRAZENECA-2014SE30080

PATIENT
  Age: 50 Year
  Sex: Male

DRUGS (2)
  1. BLOPRESID [Suspect]
     Indication: HYPERTENSION
     Route: 048
     Dates: start: 20130402, end: 20140402
  2. LOBIVON [Concomitant]

REACTIONS (1)
  - Hypokalaemia [Recovered/Resolved]
